FAERS Safety Report 7332220-0 (Version None)
Quarter: 2011Q1

REPORT INFORMATION
  Report Type: 
  Country: None (occurrence: None)
  Receive Date: 20110304
  Receipt Date: 20110228
  Transmission Date: 20110831
  Serious: Yes (Death, Hospitalization, Other)
  Sender: FDA-Public Use
  Company Number: JP-ABBOTT-11P-087-0701529-00

PATIENT
  Sex: Male
  Weight: 53 kg

DRUGS (9)
  1. TACROLIMUS HYDRATE [Suspect]
     Indication: RHEUMATOID ARTHRITIS
     Dates: start: 20100414, end: 20100525
  2. HUMIRA [Suspect]
     Dates: start: 20100428, end: 20100707
  3. TACROLIMUS HYDRATE [Suspect]
     Dates: start: 20100526, end: 20101231
  4. PREDNISOLONE [Concomitant]
     Dosage: DAILY DOSE: 2GM
     Dates: start: 20100526
  5. HUMIRA [Suspect]
     Indication: RHEUMATOID ARTHRITIS
     Route: 058
     Dates: start: 20100217, end: 20100331
  6. HUMIRA [Suspect]
     Dates: start: 20100901
  7. HUMIRA [Suspect]
     Dates: start: 20100903, end: 20101228
  8. PREDNISOLONE [Concomitant]
     Indication: RHEUMATOID ARTHRITIS
     Route: 048
     Dates: start: 20071101, end: 20101231
  9. GLIMEPIRIDE [Concomitant]
     Indication: DIABETES MELLITUS
     Route: 048
     Dates: start: 20080501, end: 20101231

REACTIONS (13)
  - RESPIRATORY DISORDER [None]
  - HEPATIC FUNCTION ABNORMAL [None]
  - DYSPNOEA [None]
  - MULTI-ORGAN FAILURE [None]
  - PNEUMONIA CYTOMEGALOVIRAL [None]
  - RESPIRATORY FAILURE [None]
  - PNEUMONIA FUNGAL [None]
  - PNEUMONIA [None]
  - INTERSTITIAL LUNG DISEASE [None]
  - PNEUMOCYSTIS JIROVECI PNEUMONIA [None]
  - KNEE ARTHROPLASTY [None]
  - SQUAMOUS CELL CARCINOMA [None]
  - PYREXIA [None]
